FAERS Safety Report 21059210 (Version 3)
Quarter: 2022Q3

REPORT INFORMATION
  Report Type: Spontaneous
  Country: JP (occurrence: JP)
  Receive Date: 20220708
  Receipt Date: 20220901
  Transmission Date: 20221027
  Serious: Yes (Hospitalization, Disabling)
  Sender: FDA-Public Use
  Company Number: JP-DSJP-DSJ-2022-124038

PATIENT
  Age: 78 Year
  Sex: Male
  Weight: 56.2 kg

DRUGS (14)
  1. PRASUGREL HYDROCHLORIDE [Suspect]
     Active Substance: PRASUGREL HYDROCHLORIDE
     Indication: Angina pectoris
     Dosage: 3.75 MG, QD
     Route: 048
     Dates: end: 20220119
  2. PRASUGREL HYDROCHLORIDE [Suspect]
     Active Substance: PRASUGREL HYDROCHLORIDE
     Indication: Coronary arterial stent insertion
  3. LINAGLIPTIN [Concomitant]
     Active Substance: LINAGLIPTIN
     Indication: Diabetes mellitus
     Dosage: 5 MG, QD
     Route: 048
     Dates: end: 20220311
  4. MIGLITOL [Concomitant]
     Active Substance: MIGLITOL
     Indication: Diabetes mellitus
     Dosage: 50 MG, TID
     Route: 048
     Dates: end: 20220111
  5. ALFACALCIDOL [Concomitant]
     Active Substance: ALFACALCIDOL
     Indication: End stage renal disease
     Dosage: 0.25 UG, QD
     Route: 048
  6. FERRIC HYDROXIDE [Concomitant]
     Active Substance: FERRIC HYDROXIDE
     Indication: End stage renal disease
     Dosage: 500 MG, TID
     Route: 048
     Dates: start: 20210402, end: 20220119
  7. DOXAZOSIN [Concomitant]
     Active Substance: DOXAZOSIN MESYLATE
     Indication: Hypertension
     Dosage: 4 MG, BID
     Route: 048
     Dates: end: 20220211
  8. TELMISARTAN [Concomitant]
     Active Substance: TELMISARTAN
     Indication: Hypertension
     Dosage: 20 MG, QD
     Route: 048
     Dates: end: 20220408
  9. AMLODIPINE BESYLATE [Concomitant]
     Active Substance: AMLODIPINE BESYLATE
     Indication: Hypertension
     Dosage: 10 MG, QD
     Route: 048
     Dates: end: 20220311
  10. PRAVASTATIN [Concomitant]
     Active Substance: PRAVASTATIN
     Indication: Hyperlipidaemia
     Dosage: 10 MG, QD
     Route: 048
     Dates: start: 20210108, end: 20220311
  11. CABPIRIN [Concomitant]
     Indication: Coronary arterial stent insertion
     Dosage: 1 DF, QD
     Route: 048
     Dates: start: 20210108
  12. CABPIRIN [Concomitant]
     Indication: Angina pectoris
  13. CARVEDILOL [Concomitant]
     Active Substance: CARVEDILOL
     Indication: Angina pectoris
     Dosage: 2.5 MG, QD
     Route: 048
     Dates: start: 20210802
  14. LANTHANUM CARBONATE [Concomitant]
     Active Substance: LANTHANUM CARBONATE
     Indication: End stage renal disease
     Dosage: 750 MG, TID
     Route: 048
     Dates: end: 20220119

REACTIONS (3)
  - Mediastinal abscess [Recovering/Resolving]
  - Vascular pseudoaneurysm [Not Recovered/Not Resolved]
  - Cholangitis [Recovered/Resolved]

NARRATIVE: CASE EVENT DATE: 20211101
